FAERS Safety Report 4895653-8 (Version None)
Quarter: 2005Q4

REPORT INFORMATION
  Report Type: 
  Country: None (occurrence: None)
  Receive Date: 20051215
  Receipt Date: 20050505
  Transmission Date: 20060501
  Serious: Yes (Other)
  Sender: FDA-Public Use
  Company Number: 2005071883

PATIENT
  Sex: Female

DRUGS (2)
  1. BEXTRA [Suspect]
     Indication: INFLAMMATION
     Dates: start: 20020401, end: 20050301
  2. BEXTRA [Suspect]
     Indication: PAIN
     Dates: start: 20020401, end: 20050301

REACTIONS (6)
  - DUODENITIS [None]
  - GASTRIC PH INCREASED [None]
  - GASTRIC ULCER [None]
  - GASTRITIS EROSIVE [None]
  - HIATUS HERNIA [None]
  - REFLUX OESOPHAGITIS [None]
